FAERS Safety Report 9222895 (Version 2)
Quarter: 2014Q3

REPORT INFORMATION
  Report Type: Spontaneous
  Country: FR (occurrence: FR)
  Receive Date: 20130410
  Receipt Date: 20140721
  Transmission Date: 20150326
  Serious: Yes (Death, Other)
  Sender: FDA-Public Use
  Company Number: FR-JNJFOC-20130401189

PATIENT

DRUGS (5)
  1. CORTICOSTEROID [Concomitant]
     Active Substance: CORTICOSTEROID NOS
     Indication: RHEUMATOID ARTHRITIS
     Route: 065
  2. GOLIMUMAB [Suspect]
     Active Substance: GOLIMUMAB
     Indication: RHEUMATOID ARTHRITIS
     Dosage: DURATION: 6 MONTHS TO 12 MONTHS
     Route: 058
  3. GOLIMUMAB [Suspect]
     Active Substance: GOLIMUMAB
     Indication: RHEUMATOID ARTHRITIS
     Route: 042
  4. METHOTREXATE [Concomitant]
     Active Substance: METHOTREXATE
     Indication: RHEUMATOID ARTHRITIS
     Route: 065
  5. DISEASE MODIFYING ANTIRHEUMATIC DRUGS [Concomitant]
     Indication: RHEUMATOID ARTHRITIS
     Route: 065

REACTIONS (21)
  - Sepsis [Unknown]
  - Tuberculosis [Unknown]
  - Septic shock [Fatal]
  - Nasopharyngitis [Unknown]
  - Gastrointestinal haemorrhage [Fatal]
  - Upper respiratory tract infection [Unknown]
  - Anaemia [Unknown]
  - Overdose [Unknown]
  - Bronchitis [Unknown]
  - Pneumonia [Unknown]
  - Injection site pain [Unknown]
  - Transaminases increased [Unknown]
  - Injection site reaction [Unknown]
  - Urinary tract infection [Unknown]
  - Plasma cell myeloma [Fatal]
  - Multi-organ failure [Fatal]
  - Respiratory failure [Fatal]
  - Headache [Unknown]
  - Therapeutic response decreased [Unknown]
  - Arthritis bacterial [Unknown]
  - Diarrhoea [Unknown]
